FAERS Safety Report 8766016 (Version 1)
Quarter: 2012Q4

REPORT INFORMATION
  Report Type: 
  Country: CN (occurrence: CN)
  Receive Date: 20120904
  Receipt Date: 20120904
  Transmission Date: 20130627
  Serious: Yes (Other)
  Sender: FDA-Public Use
  Company Number: CN-ASTRAZENECA-2011SE21916

PATIENT
  Age: 27652 Day
  Sex: Male
  Weight: 97 kg

DRUGS (2)
  1. PLENDIL [Suspect]
     Indication: HYPERTENSION
     Route: 048
     Dates: start: 20101227, end: 20101229
  2. PLENDIL [Suspect]
     Indication: ATRIAL FIBRILLATION
     Route: 048
     Dates: start: 20101227, end: 20101229

REACTIONS (6)
  - Anaphylactoid reaction [Recovering/Resolving]
  - Atrial fibrillation [Recovering/Resolving]
  - Dizziness [Recovering/Resolving]
  - Gingival swelling [Recovering/Resolving]
  - Gingival pain [Recovering/Resolving]
  - Pruritus generalised [Recovering/Resolving]
